FAERS Safety Report 25406469 (Version 2)
Quarter: 2025Q4

REPORT INFORMATION
  Report Type: Spontaneous
  Country: US (occurrence: US)
  Receive Date: 20250606
  Receipt Date: 20251216
  Transmission Date: 20260117
  Serious: Yes (Hospitalization, Other)
  Sender: PFIZER
  Company Number: US-PFIZER INC-202500113678

PATIENT
  Age: 68 Year
  Sex: Female

DRUGS (1)
  1. DOXYCYCLINE HYCLATE [Suspect]
     Active Substance: DOXYCYCLINE HYCLATE
     Indication: Staphylococcal bacteraemia
     Dosage: UNK
     Route: 048

REACTIONS (3)
  - Tubulointerstitial nephritis [Recovered/Resolved]
  - Rash maculo-papular [Recovered/Resolved]
  - Off label use [Unknown]
